FAERS Safety Report 7905769-7 (Version None)
Quarter: 2011Q4

REPORT INFORMATION
  Report Type: 
  Country: None (occurrence: None)
  Receive Date: 20111110
  Receipt Date: 20111011
  Transmission Date: 20120403
  Serious: Yes (Other)
  Sender: FDA-Public Use
  Company Number: CA-JNJFOC-20111101650

PATIENT
  Sex: Male
  Weight: 88 kg

DRUGS (11)
  1. OMEPRAZOLE [Concomitant]
  2. HYDROCORTISONE [Concomitant]
  3. REMICADE [Suspect]
     Indication: RHEUMATOID ARTHRITIS
     Route: 042
     Dates: start: 20100101
  4. CLOBETASOL [Concomitant]
  5. METHOTREXATE [Concomitant]
  6. DOVONEX [Concomitant]
  7. NASACORT [Concomitant]
  8. DESLORATADINE [Concomitant]
  9. REMICADE [Suspect]
     Indication: PSORIASIS
     Route: 042
     Dates: start: 20100101
  10. NERISONE [Concomitant]
  11. ATACAND [Concomitant]

REACTIONS (1)
  - INTERVERTEBRAL DISC PROTRUSION [None]
